FAERS Safety Report 7933744-5 (Version None)
Quarter: 2011Q4

REPORT INFORMATION
  Report Type: 
  Country: None (occurrence: None)
  Receive Date: 20111122
  Receipt Date: 20111117
  Transmission Date: 20120403
  Serious: No
  Sender: FDA-Public Use
  Company Number: US-PFIZER INC-2011282082

PATIENT
  Sex: Female

DRUGS (2)
  1. CLARITIN [Suspect]
     Indication: UPPER-AIRWAY COUGH SYNDROME
     Dosage: 10 MG, UNK
     Route: 048
     Dates: start: 20111026
  2. DOXYCYCLINE HYCLATE [Suspect]
     Dosage: UNK
     Dates: start: 20111101

REACTIONS (1)
  - PRURITUS [None]
